FAERS Safety Report 14012722 (Version 6)
Quarter: 2019Q1

REPORT INFORMATION
  Report Type: Report from Study
  Country: US (occurrence: US)
  Receive Date: 20170926
  Receipt Date: 20190330
  Transmission Date: 20190417
  Serious: Yes (Hospitalization, Other)
  Sender: FDA-Public Use
  Company Number: PHHY2017US088199

PATIENT
  Age: 59 Year
  Sex: Female

DRUGS (8)
  1. ENOXAPARIN [Concomitant]
     Active Substance: ENOXAPARIN
     Indication: HYPERTENSION
     Dosage: UNK
     Route: 065
     Dates: start: 20151002, end: 20151009
  2. MAGNES SULF [Concomitant]
     Indication: PRODUCT USED FOR UNKNOWN INDICATION
     Dosage: UNK
     Route: 065
     Dates: start: 20151002, end: 20151009
  3. DOCUSATE SODIUM. [Concomitant]
     Active Substance: DOCUSATE SODIUM
     Indication: CONSTIPATION
     Dosage: UNK
     Route: 065
     Dates: start: 20151002, end: 20151009
  4. LABETALOL HCL [Concomitant]
     Active Substance: LABETALOL HYDROCHLORIDE
     Indication: HYPERTENSION
     Dosage: UNK
     Route: 065
     Dates: start: 20151002, end: 20151009
  5. GILENYA [Suspect]
     Active Substance: FINGOLIMOD HYDROCHLORIDE
     Indication: MULTIPLE SCLEROSIS
     Dosage: UNK UNK, QD
     Route: 048
  6. POTASSIUM CHLORATE [Concomitant]
     Active Substance: POTASSIUM CHLORATE
     Indication: PRODUCT USED FOR UNKNOWN INDICATION
     Dosage: UNK
     Route: 065
     Dates: start: 20151002, end: 20151009
  7. SOLU-MEDROL [Concomitant]
     Active Substance: METHYLPREDNISOLONE SODIUM SUCCINATE
     Indication: PRODUCT USED FOR UNKNOWN INDICATION
     Dosage: UNK
     Route: 065
     Dates: start: 20151002, end: 20151003
  8. MILK OF MAGNESIA [Concomitant]
     Active Substance: MAGNESIUM HYDROXIDE
     Indication: CONSTIPATION
     Dosage: UNK
     Route: 065
     Dates: start: 20151002, end: 20151009

REACTIONS (18)
  - Hypertension [Unknown]
  - Cerebral artery embolism [Recovered/Resolved]
  - Vaginal infection [Unknown]
  - Uhthoff^s phenomenon [Recovered/Resolved]
  - Fibrous histiocytoma [Unknown]
  - Metabolic encephalopathy [Recovered/Resolved]
  - Diarrhoea [Unknown]
  - Insomnia [Unknown]
  - Paraesthesia [Unknown]
  - Dehydration [Recovered/Resolved]
  - Arthritis [Unknown]
  - Rhabdomyolysis [Recovered/Resolved]
  - Blood alkaline phosphatase decreased [Unknown]
  - Melanocytic naevus [Unknown]
  - Oedema peripheral [Unknown]
  - Vertigo [Unknown]
  - Blister [Unknown]
  - Hypoaesthesia [Unknown]

NARRATIVE: CASE EVENT DATE: 20140724
